FAERS Safety Report 5095544-6 (Version None)
Quarter: 2006Q3

REPORT INFORMATION
  Report Type: 
  Country: None (occurrence: None)
  Receive Date: 20060901
  Receipt Date: 20060822
  Transmission Date: 20061208
  Serious: Yes (Hospitalization)
  Sender: FDA-Public Use
  Company Number: AU-ABBOTT-06P-008-0342130-00

PATIENT
  Age: 19 Year
  Sex: Male

DRUGS (9)
  1. VALPROATE SODIUM [Suspect]
     Indication: EPILEPSY
  2. VALPROATE SODIUM [Suspect]
  3. PHENYTOIN [Concomitant]
     Indication: CONVULSION PROPHYLAXIS
  4. PHENYTOIN [Concomitant]
  5. PHENYTOIN [Concomitant]
  6. CARBAMAZEPINE [Concomitant]
     Indication: CONVULSION PROPHYLAXIS
  7. CARBAMAZEPINE [Concomitant]
  8. CLONAZEPAM [Concomitant]
     Indication: CONVULSION PROPHYLAXIS
  9. CLONAZEPAM [Concomitant]

REACTIONS (2)
  - FACE INJURY [None]
  - HEPATOTOXICITY [None]
